FAERS Safety Report 5534043-1 (Version None)
Quarter: 2007Q4

REPORT INFORMATION
  Report Type: 
  Country: None (occurrence: None)
  Receive Date: 20071129
  Receipt Date: 20071129
  Transmission Date: 20080405
  Serious: Yes (Other)
  Sender: FDA-Public Use
  Company Number: None

PATIENT
  Age: 62 Year
  Sex: Female
  Weight: 70.7611 kg

DRUGS (1)
  1. CHANTIX [Suspect]
     Indication: DRUG ABUSE
     Dosage: 0.5 MG
     Dates: start: 20070924, end: 20071015

REACTIONS (1)
  - NIGHTMARE [None]
